FAERS Safety Report 24632766 (Version 1)
Quarter: 2024Q4

REPORT INFORMATION
  Report Type: Spontaneous
  Country: US (occurrence: US)
  Receive Date: 20241118
  Receipt Date: 20241118
  Transmission Date: 20250115
  Serious: No
  Sender: PERRIGO
  Company Number: US-PERRIGO-24US006316

PATIENT
  Age: 42 Year
  Sex: Female
  Weight: 113.38 kg

DRUGS (4)
  1. OPILL [Suspect]
     Active Substance: NORGESTREL
     Indication: Contraception
     Dosage: 0.075 MG, QD
     Route: 048
     Dates: start: 202405, end: 20240630
  2. OPILL [Suspect]
     Active Substance: NORGESTREL
     Dosage: 0.075 MG, TWICE
     Route: 048
     Dates: start: 20240702, end: 20240702
  3. OPILL [Suspect]
     Active Substance: NORGESTREL
     Dosage: 0.075 MG, QD
     Route: 048
     Dates: start: 20240703
  4. STELARA [Concomitant]
     Active Substance: USTEKINUMAB
     Indication: Psoriasis
     Dosage: UNKNOWN, UNKNOWN
     Route: 065

REACTIONS (4)
  - Heavy menstrual bleeding [Recovering/Resolving]
  - Extra dose administered [Unknown]
  - Inappropriate schedule of product administration [Unknown]
  - Product dose omission issue [Unknown]

NARRATIVE: CASE EVENT DATE: 20240601
